FAERS Safety Report 5115164-4 (Version None)
Quarter: 2006Q3

REPORT INFORMATION
  Report Type: 
  Country: None (occurrence: None)
  Receive Date: 20060925
  Receipt Date: 20060925
  Transmission Date: 20061208
  Serious: Yes (Other)
  Sender: FDA-Public Use
  Company Number: None

PATIENT
  Sex: Male
  Weight: 66.2252 kg

DRUGS (5)
  1. GEMCITABINE     100MG/ML        ELI LILLY [Suspect]
     Indication: PANCREATIC CARCINOMA
     Dosage: 100MG/M2    DAY 1 + 15    IV DRIP
     Route: 041
     Dates: start: 20060413, end: 20060831
  2. CISPLATIN [Suspect]
     Indication: PANCREATIC CARCINOMA
     Dosage: 20MG/M2    DAY 1 + 15   IV DRIP
     Route: 041
     Dates: start: 20060413, end: 20060831
  3. BEVACIZUMAB   50MG/ML     GENENTECH [Suspect]
     Indication: PANCREATIC CARCINOMA
     Dosage: 10MG/KG    DAY 1 + 15     IV DRIP
     Route: 041
     Dates: start: 20060413, end: 20060831
  4. DILAUDID [Concomitant]
  5. NORVASC [Concomitant]

REACTIONS (1)
  - ATRIAL FIBRILLATION [None]
